FAERS Safety Report 8384237-5 (Version None)
Quarter: 2012Q2

REPORT INFORMATION
  Report Type: 
  Country: None (occurrence: None)
  Receive Date: 20120524
  Receipt Date: 20120518
  Transmission Date: 20120825
  Serious: Yes (Hospitalization, Disabling, Other)
  Sender: FDA-Public Use
  Company Number: US-MERCK-1201USA02537

PATIENT
  Age: 59 Year
  Sex: Female
  Weight: 59 kg

DRUGS (6)
  1. FOSAMAX [Suspect]
     Indication: OSTEOPENIA
     Route: 048
     Dates: start: 20040305, end: 20080422
  2. ALENDRONATE SODIUM [Suspect]
     Route: 048
     Dates: start: 20080717, end: 20080901
  3. VITAMIN D (UNSPECIFIED) [Concomitant]
     Route: 048
  4. FOSAMAX [Suspect]
     Indication: OSTEOPOROSIS
     Route: 048
     Dates: start: 20040305, end: 20080422
  5. OMEGA-3 MARINE TRIGLYCERIDES [Concomitant]
     Route: 048
  6. CALCIUM (UNSPECIFIED) [Concomitant]
     Route: 065

REACTIONS (32)
  - FEMUR FRACTURE [None]
  - HYPERTENSION [None]
  - TOOTH DISORDER [None]
  - PERIODONTAL DISEASE [None]
  - HYPERHIDROSIS [None]
  - COSTOCHONDRITIS [None]
  - ACUTE MYOCARDIAL INFARCTION [None]
  - BRONCHITIS [None]
  - CARDIAC FAILURE CONGESTIVE [None]
  - HYPOTHYROIDISM [None]
  - PNEUMONIA [None]
  - PULMONARY EMBOLISM [None]
  - PAIN IN EXTREMITY [None]
  - MITRAL VALVE PROLAPSE [None]
  - LUNG DISORDER [None]
  - BONE DENSITY DECREASED [None]
  - FALL [None]
  - MYOCARDIAL INFARCTION [None]
  - ARTHROPATHY [None]
  - URINARY TRACT INFECTION [None]
  - DRUG INEFFECTIVE [None]
  - NAUSEA [None]
  - CHEST PAIN [None]
  - DEVICE FAILURE [None]
  - ANXIETY [None]
  - LABORATORY TEST ABNORMAL [None]
  - INTERSTITIAL LUNG DISEASE [None]
  - VOMITING [None]
  - GASTROOESOPHAGEAL REFLUX DISEASE [None]
  - PERICARDIAL EFFUSION [None]
  - CATARACT [None]
  - MUSCULOSKELETAL CHEST PAIN [None]
